FAERS Safety Report 16612339 (Version 1)
Quarter: 2019Q3

REPORT INFORMATION
  Report Type: Spontaneous
  Country: US (occurrence: US)
  Receive Date: 20190722
  Receipt Date: 20190722
  Transmission Date: 20191004
  Serious: No
  Sender: FDA-Public Use
  Company Number: US-FOUNDATIONCONSUMERHC-2019-US-009695

PATIENT
  Age: 38 Year
  Sex: Female
  Weight: 52.62 kg

DRUGS (1)
  1. PLAN B ONE-STEP [Suspect]
     Active Substance: LEVONORGESTREL
     Indication: POST COITAL CONTRACEPTION
     Dosage: 1.5 MG X 1 DOSE
     Route: 048
     Dates: start: 20190512, end: 20190512

REACTIONS (5)
  - Breast tenderness [Not Recovered/Not Resolved]
  - Breast pain [Not Recovered/Not Resolved]
  - Nausea [Not Recovered/Not Resolved]
  - Breast discomfort [Not Recovered/Not Resolved]
  - Mood swings [Not Recovered/Not Resolved]

NARRATIVE: CASE EVENT DATE: 20190515
